FAERS Safety Report 6645939-1 (Version None)
Quarter: 2010Q1

REPORT INFORMATION
  Report Type: 
  Country: None (occurrence: None)
  Receive Date: 20100323
  Receipt Date: 20100318
  Transmission Date: 20100710
  Serious: Yes (Death)
  Sender: FDA-Public Use
  Company Number: PHEH2010US01186

PATIENT
  Sex: Female
  Weight: 75.6 kg

DRUGS (7)
  1. GLEEVEC [Suspect]
     Indication: GASTROINTESTINAL STROMAL TUMOUR
     Dosage: 400 MG, QD
     Dates: start: 20070501
  2. GLEEVEC [Suspect]
     Dosage: 800 MG, QD
     Dates: end: 20090501
  3. SUTENT [Suspect]
     Indication: GASTROINTESTINAL STROMAL TUMOUR
     Dosage: 50 MG, UNK, 4 WKS ON, 2 WEEKS OFF
     Dates: start: 20090501, end: 20090801
  4. SUTENT [Suspect]
     Dosage: 37.5 MG, QD
     Route: 048
     Dates: start: 20090801
  5. CYCLOBENZAPRINE [Concomitant]
     Dosage: 10 MG, QHS
     Route: 048
  6. GABAPENTIN [Concomitant]
     Dosage: 300 MG, BID
  7. NEXIUM [Concomitant]
     Dosage: 40 MG, QD
     Route: 048

REACTIONS (21)
  - ABDOMINAL DISCOMFORT [None]
  - ABDOMINAL PAIN [None]
  - ARTHRALGIA [None]
  - ASTHENIA [None]
  - BACK PAIN [None]
  - BREAST DISORDER [None]
  - CONTUSION [None]
  - DRUG INEFFECTIVE [None]
  - FATIGUE [None]
  - GASTROINTESTINAL STROMAL TUMOUR [None]
  - GASTROINTESTINAL SURGERY [None]
  - HOT FLUSH [None]
  - MALIGNANT NEOPLASM PROGRESSION [None]
  - METASTASES TO ABDOMINAL CAVITY [None]
  - METASTASES TO BONE [None]
  - METASTASES TO LIVER [None]
  - NAUSEA [None]
  - PELVIC DISCOMFORT [None]
  - POLLAKIURIA [None]
  - RETROPERITONEAL LYMPHADENOPATHY [None]
  - TEMPERATURE INTOLERANCE [None]
